FAERS Safety Report 15657003 (Version 1)
Quarter: 2018Q4

REPORT INFORMATION
  Report Type: Spontaneous
  Country: US (occurrence: US)
  Receive Date: 20181126
  Receipt Date: 20181126
  Transmission Date: 20190205
  Serious: Yes (Life-Threatening, Hospitalization, Other)
  Sender: FDA-Public Use
  Company Number: US-SA-2017SA159318

PATIENT
  Age: 40 Year
  Sex: Female

DRUGS (7)
  1. LOPERAMIDE HYDROCHLORIDE. [Interacting]
     Active Substance: LOPERAMIDE HYDROCHLORIDE
     Indication: SEIZURE
  2. SODIUM BICARBONATE. [Suspect]
     Active Substance: SODIUM BICARBONATE
     Indication: TORSADE DE POINTES
     Dosage: UNK UNK,UNK
  3. SODIUM BICARBONATE. [Suspect]
     Active Substance: SODIUM BICARBONATE
     Indication: VENTRICULAR TACHYCARDIA
  4. LIDOCAINE HYDROCHLORIDE. [Suspect]
     Active Substance: LIDOCAINE HYDROCHLORIDE
     Indication: TORSADE DE POINTES
     Dosage: UNK UNK,UNK
  5. LIDOCAINE HYDROCHLORIDE. [Suspect]
     Active Substance: LIDOCAINE HYDROCHLORIDE
     Indication: VENTRICULAR TACHYCARDIA
  6. CIMETIDINE [Interacting]
     Active Substance: CIMETIDINE
     Indication: EUPHORIC MOOD
     Dosage: UNK UNK,UNK
     Route: 048
  7. LOPERAMIDE HYDROCHLORIDE. [Interacting]
     Active Substance: LOPERAMIDE HYDROCHLORIDE
     Indication: DRUG ABUSE
     Dosage: TEN EMPTY BOTTLES (EACH BOTTLE OF LOPERAMIDE ORIGINALLY CONTAINED BETWEEN 96 AND 200 2-MG
     Route: 048

REACTIONS (15)
  - Cardiac arrest [Recovered/Resolved]
  - Torsade de pointes [Recovered/Resolved]
  - Drug abuse [Unknown]
  - Dyspnoea [Unknown]
  - Arrhythmia [Recovered/Resolved]
  - Potentiating drug interaction [Unknown]
  - Anxiety [Unknown]
  - Cardiotoxicity [Unknown]
  - Urinary incontinence [Unknown]
  - Electrocardiogram QT prolonged [Recovering/Resolving]
  - Intentional product misuse [Unknown]
  - Palpitations [Unknown]
  - Syncope [Unknown]
  - Ventricular tachycardia [Recovered/Resolved]
  - Drug ineffective [Unknown]
